FAERS Safety Report 5927062-4 (Version None)
Quarter: 2008Q4

REPORT INFORMATION
  Report Type: 
  Country: None (occurrence: None)
  Receive Date: 20081022
  Receipt Date: 20081017
  Transmission Date: 20090506
  Serious: Yes (Hospitalization, Other)
  Sender: FDA-Public Use
  Company Number: PL-B.I. PHARMACEUTICALS,INC./RIDGEFIELD-2008-AP-00227AP

PATIENT
  Age: 66 Year
  Sex: Female
  Weight: 65 kg

DRUGS (7)
  1. SPIRIVA [Suspect]
     Indication: CHRONIC OBSTRUCTIVE PULMONARY DISEASE
     Route: 055
     Dates: start: 20080301, end: 20080815
  2. BEROTEC [Concomitant]
     Dosage: AS NEEDED
  3. ZOCOR [Concomitant]
     Dosage: 1X1
  4. XARTAN [Concomitant]
     Dosage: 1X1
  5. BISOCARD [Concomitant]
     Dosage: 1X1
  6. SEREVENT [Concomitant]
     Dosage: WHEN NEEDED ONLY
  7. ACARD [Concomitant]

REACTIONS (3)
  - COUGH [None]
  - DYSARTHRIA [None]
  - DYSPHAGIA [None]
